FAERS Safety Report 18398757 (Version 3)
Quarter: 2023Q1

REPORT INFORMATION
  Report Type: Spontaneous
  Country: US (occurrence: US)
  Receive Date: 20201019
  Receipt Date: 20230119
  Transmission Date: 20230418
  Serious: Yes (Other)
  Sender: FDA-Public Use
  Company Number: US-PFIZER INC-2020398716

PATIENT
  Age: 70 Year
  Sex: Female
  Weight: 79.38 kg

DRUGS (3)
  1. XELJANZ XR [Suspect]
     Active Substance: TOFACITINIB CITRATE
     Indication: Rheumatoid arthritis
     Dosage: 11 MG, 1X/DAY
  2. SYNTHROID [Concomitant]
     Active Substance: LEVOTHYROXINE SODIUM
     Indication: Thyroid disorder
     Dosage: 125 MG
  3. TELMISARTAN [Concomitant]
     Active Substance: TELMISARTAN
     Indication: Blood pressure abnormal
     Dosage: 80 MG

REACTIONS (8)
  - Intervertebral disc operation [Unknown]
  - Post procedural complication [Unknown]
  - Therapeutic product effect incomplete [Unknown]
  - Flatulence [Not Recovered/Not Resolved]
  - Nausea [Unknown]
  - Gastrooesophageal reflux disease [Recovering/Resolving]
  - COVID-19 [Unknown]
  - Dry eye [Unknown]

NARRATIVE: CASE EVENT DATE: 20210101
